FAERS Safety Report 13380014 (Version 1)
Quarter: 2017Q1

REPORT INFORMATION
  Report Type: Spontaneous
  Country: US (occurrence: US)
  Receive Date: 20170328
  Receipt Date: 20170328
  Transmission Date: 20170429
  Serious: No
  Sender: FDA-Public Use
  Company Number: US-ELI_LILLY_AND_COMPANY-US201607008833

PATIENT
  Sex: Female

DRUGS (2)
  1. CYMBALTA [Suspect]
     Active Substance: DULOXETINE HYDROCHLORIDE
     Indication: PRODUCT USED FOR UNKNOWN INDICATION
     Dosage: 30 MG, QD
     Route: 048
     Dates: start: 20140408
  2. CYMBALTA [Suspect]
     Active Substance: DULOXETINE HYDROCHLORIDE
     Dosage: 60 MG, QD
     Route: 048
     Dates: start: 20140514, end: 20140916

REACTIONS (14)
  - Visual impairment [Unknown]
  - Vertigo [Unknown]
  - Otitis media [Unknown]
  - Fatigue [Unknown]
  - Anxiety [Unknown]
  - Drug withdrawal syndrome [Unknown]
  - Headache [Unknown]
  - Ear disorder [Unknown]
  - Abdominal discomfort [Unknown]
  - Heart rate irregular [Unknown]
  - Dizziness [Unknown]
  - Electric shock [Unknown]
  - Malaise [Unknown]
  - Paraesthesia [Unknown]
